FAERS Safety Report 8239741-7 (Version None)
Quarter: 2012Q1

REPORT INFORMATION
  Report Type: 
  Country: None (occurrence: None)
  Receive Date: 20120327
  Receipt Date: 20120327
  Transmission Date: 20120608
  Serious: Yes (Hospitalization)
  Sender: FDA-Public Use
  Company Number: None

PATIENT
  Sex: Male
  Weight: 119 kg

DRUGS (4)
  1. METHOTREXATE [Suspect]
     Dosage: 30 MG
  2. CYCLOPHOSPHAMIDE [Suspect]
     Dosage: 2200 MG
  3. CYTARABINE [Suspect]
     Dosage: 825 MG
  4. MERCAPTOPURINE [Suspect]
     Dosage: 1200 MG

REACTIONS (9)
  - TOXICITY TO VARIOUS AGENTS [None]
  - INCONTINENCE [None]
  - CONVULSION [None]
  - MASTOID EFFUSION [None]
  - MENTAL STATUS CHANGES [None]
  - HEMIPARESIS [None]
  - APHASIA [None]
  - NUCLEAR MAGNETIC RESONANCE IMAGING BRAIN ABNORMAL [None]
  - ASTHENIA [None]
